FAERS Safety Report 17520890 (Version 1)
Quarter: 2020Q1

REPORT INFORMATION
  Report Type: Spontaneous
  Country: US (occurrence: US)
  Receive Date: 20200309
  Receipt Date: 20200309
  Transmission Date: 20200409
  Serious: No
  Sender: FDA-Public Use
  Company Number: None

PATIENT
  Sex: Female
  Weight: 72.57 kg

DRUGS (1)
  1. NEXPLANON [Suspect]
     Active Substance: ETONOGESTREL

REACTIONS (5)
  - Implantation complication [None]
  - Abdominal discomfort [None]
  - Emotional disorder [None]
  - Menorrhagia [None]
  - Abdominal distension [None]

NARRATIVE: CASE EVENT DATE: 20191228
